FAERS Safety Report 7020527-6 (Version None)
Quarter: 2010Q3

REPORT INFORMATION
  Report Type: 
  Country: None (occurrence: None)
  Receive Date: 20100929
  Receipt Date: 20100927
  Transmission Date: 20110219
  Serious: Yes (Hospitalization)
  Sender: FDA-Public Use
  Company Number: CO-ROCHE-729390

PATIENT
  Sex: Female

DRUGS (3)
  1. CELLCEPT [Suspect]
     Indication: LIVER TRANSPLANT
     Route: 048
     Dates: start: 20070426
  2. TACROLIMUS [Concomitant]
     Indication: LIVER TRANSPLANT
     Dosage: FREQUENCY:  DAILY
     Route: 048
  3. PREDNISOLONE [Concomitant]
     Indication: LIVER TRANSPLANT
     Dosage: FREQUENCY: DAILY
     Route: 048

REACTIONS (1)
  - TRANSPLANT REJECTION [None]
